FAERS Safety Report 22635616 (Version 1)
Quarter: 2023Q2

REPORT INFORMATION
  Report Type: Report from Study
  Country: EG (occurrence: EG)
  Receive Date: 20230623
  Receipt Date: 20230623
  Transmission Date: 20230722
  Serious: Yes (Hospitalization)
  Sender: FDA-Public Use
  Company Number: EG-002147023-NVSC2023EG125250

PATIENT
  Age: 58 Year
  Sex: Male

DRUGS (14)
  1. LEQVIO [Suspect]
     Active Substance: INCLISIRAN SODIUM
     Indication: Hypercholesterolaemia
     Dosage: 1 DOSAGE FORM (3 MONTHS AGO) EVERY 3 MONTHS
     Route: 058
     Dates: start: 20230310
  2. NICORANDIL [Concomitant]
     Active Substance: NICORANDIL
     Indication: Stent placement
     Dosage: UNK, QD (ONE YEAR AGO (THE PATIENT COULDN^T  REMEMBER THE EXACT DATE))
     Route: 048
  3. TICAGRELOR [Concomitant]
     Active Substance: TICAGRELOR
     Indication: Anticoagulant therapy
     Dosage: UNK, BID ( ONE YEAR AGO (THE PATIENT COULDN^T REMEMBER THE EXACT DATE) )
     Route: 065
  4. PLAVIX [Concomitant]
     Active Substance: CLOPIDOGREL BISULFATE
     Indication: Product used for unknown indication
     Dosage: UNK, QD (STOPPED ONE YEAR AGO)
     Route: 048
     Dates: start: 2006
  5. .ALPHA.-LIPOIC ACID [Concomitant]
     Active Substance: .ALPHA.-LIPOIC ACID
     Indication: Nerve injury
     Dosage: UNK, BID ( 600 COMPLEX,TWO OR THREE YEARS AGO
     Route: 048
  6. ASPIRIN [Concomitant]
     Active Substance: ASPIRIN
     Indication: Anticoagulant therapy
     Dosage: UNK, QD (A YEAR AGO)
     Route: 048
  7. RIVO [Concomitant]
     Indication: Anticoagulant therapy
     Dosage: UNK, QD (THE PATIENT COULDN^T REMEMBER THE EXACT DATE) /  STOPPED ONE YEAR AGO (THE PATIENT COULDN^T
     Route: 048
     Dates: start: 2006
  8. DAPAGLIFLOZIN [Concomitant]
     Active Substance: DAPAGLIFLOZIN
     Indication: Diabetes mellitus
     Dosage: UNK, QD 9ONE YEAR AGO (THE PATIENT COULDN^T REMEMBER THE EXACT DATE))
     Route: 048
  9. CRESTOR [Concomitant]
     Active Substance: ROSUVASTATIN CALCIUM
     Indication: Hypercholesterolaemia
     Dosage: UNK QD (ONE OR TWO YEARS AGO (THE PATIENT COULDN^T REMEMBER THE EXACT DATE))
     Route: 048
  10. ATORVASTATIN CALCIUM [Concomitant]
     Active Substance: ATORVASTATIN CALCIUM
     Indication: Hypercholesterolaemia
     Dosage: UNK UNK, QD (STOPPED ONE OR TWO YEARS AGO)
     Route: 048
     Dates: start: 2006
  11. BENFOTIAMINE\CYANOCOBALAMIN\PYRIDOXINE HYDROCHLORIDE [Concomitant]
     Active Substance: BENFOTIAMINE\CYANOCOBALAMIN\PYRIDOXINE HYDROCHLORIDE
     Indication: Nervous system disorder
     Dosage: UNK, BID (STOPPED TWO YEARS AGO)
     Route: 048
     Dates: start: 2010
  12. BISOPROLOL FUMARATE [Concomitant]
     Active Substance: BISOPROLOL FUMARATE
     Indication: Hypertension
     Dosage: UNK UNK, QD (STRENGTH: 5MG)
     Route: 065
     Dates: start: 2006
  13. BISOPROLOL FUMARATE [Concomitant]
     Active Substance: BISOPROLOL FUMARATE
     Dosage: UNK UNK, QD (STRENGTH: 2.5 MG)(ONE MONTH AGO)
     Route: 065
  14. DINITRA [Concomitant]
     Indication: Asthma
     Dosage: UNK UNK, PRN
     Route: 060
     Dates: start: 202209

REACTIONS (8)
  - Cerebrovascular accident [Recovering/Resolving]
  - Fatigue [Unknown]
  - Chest pain [Recovering/Resolving]
  - Dyspnoea [Recovering/Resolving]
  - Abdominal discomfort [Unknown]
  - Abdominal distension [Unknown]
  - Product dose omission issue [Unknown]
  - Off label use [Unknown]

NARRATIVE: CASE EVENT DATE: 20230501
